APPROVED DRUG PRODUCT: ACETAMINOPHEN AND IBUPROFEN
Active Ingredient: ACETAMINOPHEN; IBUPROFEN
Strength: 250MG;125MG
Dosage Form/Route: TABLET;ORAL
Application: A218359 | Product #001
Applicant: AUROBINDO PHARMA LTD
Approved: Mar 26, 2024 | RLD: No | RS: No | Type: OTC